FAERS Safety Report 19507454 (Version 6)
Quarter: 2022Q2

REPORT INFORMATION
  Report Type: Spontaneous
  Country: JP (occurrence: JP)
  Receive Date: 20210708
  Receipt Date: 20220517
  Transmission Date: 20220721
  Serious: Yes (Death, Hospitalization)
  Sender: FDA-Public Use
  Company Number: JP-JNJFOC-20210664474

PATIENT
  Age: 67 Year
  Sex: Male
  Weight: 55.3 kg

DRUGS (16)
  1. OPSUMIT [Suspect]
     Active Substance: MACITENTAN
     Indication: Pulmonary arterial hypertension
     Route: 048
     Dates: start: 20200107
  2. UPTRAVI [Suspect]
     Active Substance: SELEXIPAG
     Indication: Pulmonary arterial hypertension
     Route: 048
     Dates: start: 20210516, end: 20210524
  3. UPTRAVI [Suspect]
     Active Substance: SELEXIPAG
     Route: 048
     Dates: start: 20210525, end: 20210531
  4. UPTRAVI [Suspect]
     Active Substance: SELEXIPAG
     Route: 048
     Dates: start: 20210601, end: 20210607
  5. BERAPROST SODIUM [Concomitant]
     Active Substance: BERAPROST SODIUM
     Indication: Product used for unknown indication
     Dosage: DOSE UNKNOWN
     Route: 048
  6. ADCIRCA [Concomitant]
     Active Substance: TADALAFIL
     Indication: Pulmonary arterial hypertension
     Route: 048
     Dates: start: 20191210
  7. OXYGEN [Concomitant]
     Active Substance: OXYGEN
     Dosage: 3-5 L
     Route: 055
  8. METHIMAZOLE [Concomitant]
     Active Substance: METHIMAZOLE
     Indication: Basedow^s disease
     Route: 065
     Dates: start: 20201210
  9. AZOSEMIDE [Concomitant]
     Active Substance: AZOSEMIDE
     Indication: Polyuria
     Dosage: END DATE- /JUN/2021
     Route: 065
     Dates: start: 20210501
  10. AZOSEMIDE [Concomitant]
     Active Substance: AZOSEMIDE
     Dates: start: 20210611, end: 20210626
  11. PIRFENIDONE [Concomitant]
     Active Substance: PIRFENIDONE
     Indication: Idiopathic pulmonary fibrosis
     Route: 065
     Dates: start: 20200818
  12. FUROSEMIDE [Concomitant]
     Active Substance: FUROSEMIDE
     Indication: Polyuria
     Route: 065
     Dates: start: 20191210
  13. FUROSEMIDE [Concomitant]
     Active Substance: FUROSEMIDE
     Route: 065
  14. CODEINE PHOSPHATE [Concomitant]
     Active Substance: CODEINE PHOSPHATE
     Indication: Respiratory symptom
     Route: 065
     Dates: start: 20210302
  15. SAMSCA [Concomitant]
     Active Substance: TOLVAPTAN
     Indication: Polyuria
     Route: 065
     Dates: start: 20210428
  16. PREDONINE [Concomitant]
     Active Substance: PREDNISOLONE
     Indication: Basedow^s disease
     Route: 065
     Dates: start: 20191210

REACTIONS (5)
  - Pneumonia aspiration [Fatal]
  - Pulmonary arterial hypertension [Fatal]
  - Oxygen saturation decreased [Recovered/Resolved]
  - N-terminal prohormone brain natriuretic peptide increased [Recovered/Resolved]
  - Dyspnoea exertional [Recovered/Resolved]

NARRATIVE: CASE EVENT DATE: 20210516
